FAERS Safety Report 7945976-0 (Version None)
Quarter: 2011Q4

REPORT INFORMATION
  Report Type: 
  Country: None (occurrence: None)
  Receive Date: 20111129
  Receipt Date: 20111118
  Transmission Date: 20120403
  Serious: Yes (Life-Threatening, Hospitalization, Other)
  Sender: FDA-Public Use
  Company Number: JP-GENZYME-THYM-1002913

PATIENT
  Sex: Male
  Weight: 11 kg

DRUGS (20)
  1. PREDNISOLONE [Concomitant]
     Indication: PREMEDICATION
     Dosage: UNK
     Dates: start: 20110221, end: 20110222
  2. NORFLOXACIN [Concomitant]
     Indication: PROPHYLAXIS
     Dosage: UNK
     Dates: start: 20110207, end: 20110302
  3. EPINASTINE HYDROCHLORIDE [Concomitant]
     Indication: GRAFT VERSUS HOST DISEASE
     Dosage: UNK
     Dates: start: 20110325
  4. THYMOGLOBULIN [Suspect]
     Indication: BONE MARROW CONDITIONING REGIMEN
     Dosage: 25 MG, QD
     Route: 042
     Dates: start: 20110221, end: 20110222
  5. TACROLIMUS [Concomitant]
     Dosage: UNK
     Dates: start: 20110312
  6. FLUDARABINE PHOSPHATE [Concomitant]
     Indication: HISTIOCYTOSIS HAEMATOPHAGIC
     Dosage: UNK
     Dates: start: 20110216
  7. IMMUNOGLOBULIN HUMAN NORMAL [Concomitant]
     Indication: ANTIVIRAL PROPHYLAXIS
     Dosage: UNK
     Dates: end: 20110412
  8. TACROLIMUS [Concomitant]
     Indication: PROPHYLAXIS AGAINST GRAFT VERSUS HOST DISEASE
     Dosage: UNK
     Dates: start: 20110222, end: 20110312
  9. FLUCONAZOLE [Concomitant]
     Indication: ANTIFUNGAL PROPHYLAXIS
     Dosage: UNK
     Dates: start: 20110209
  10. ACYCLOVIR [Concomitant]
     Indication: ANTIVIRAL PROPHYLAXIS
     Dosage: UNK
     Dates: start: 20110216, end: 20110325
  11. HAPTOGLOBINS [Concomitant]
     Indication: PROPHYLAXIS
     Dosage: UNK
     Dates: start: 20110223, end: 20110223
  12. ETOPOSIDE [Concomitant]
     Indication: HISTIOCYTOSIS HAEMATOPHAGIC
     Dosage: UNK
     Dates: start: 20110216, end: 20110217
  13. GRANISETRON [Concomitant]
     Indication: PROPHYLAXIS OF NAUSEA AND VOMITING
     Dosage: UNK
     Dates: start: 20110216, end: 20110220
  14. HYDROXYZINE [Concomitant]
     Indication: PREMEDICATION
     Dosage: UNK
     Dates: start: 20110221, end: 20110222
  15. PREDNISOLONE [Concomitant]
     Indication: HISTIOCYTOSIS HAEMATOPHAGIC
     Dosage: UNK
     Dates: start: 20110216, end: 20110220
  16. URSODIOL [Concomitant]
     Indication: PROPHYLAXIS
     Dosage: UNK
     Dates: start: 20110216, end: 20110325
  17. METHOTREXATE [Concomitant]
     Indication: PROPHYLAXIS AGAINST GRAFT VERSUS HOST DISEASE
     Dosage: UNK
     Dates: start: 20110224, end: 20110301
  18. MELPHALAN HYDROCHLORIDE [Concomitant]
     Indication: HISTIOCYTOSIS HAEMATOPHAGIC
     Dosage: UNK
     Dates: start: 20110219, end: 20110220
  19. SULFAMETHOPRIM [Concomitant]
     Indication: ANTIFUNGAL PROPHYLAXIS
     Dosage: UNK
     Dates: start: 20110404
  20. GLYCYRRHIZIN GLYCINE CYTEINE COMBINED DRUG [Concomitant]
     Indication: HEPATIC FUNCTION ABNORMAL

REACTIONS (4)
  - HERPES ZOSTER [None]
  - INFECTION [None]
  - ACUTE GRAFT VERSUS HOST DISEASE IN SKIN [None]
  - NEUTROPENIA [None]
